FAERS Safety Report 7424561-3 (Version None)
Quarter: 2011Q2

REPORT INFORMATION
  Report Type: 
  Country: None (occurrence: None)
  Receive Date: 20110419
  Receipt Date: 20110407
  Transmission Date: 20111010
  Serious: Yes (Death, Hospitalization)
  Sender: FDA-Public Use
  Company Number: FR-PFIZER INC-2011057741

PATIENT
  Age: 90 Year
  Sex: Female

DRUGS (9)
  1. TRANSIPEG [Concomitant]
     Route: 048
  2. LYRICA [Concomitant]
     Indication: NEURALGIA
     Dosage: 2 DF DAILY
     Route: 048
  3. ATARAX [Suspect]
     Dosage: UNK
     Route: 048
     Dates: end: 20110204
  4. ACTISKENAN [Suspect]
     Dosage: 10 MG, 4 UNITS DAILY
     Route: 048
  5. PARACETAMOL [Concomitant]
     Route: 048
  6. OMEPRAZOLE [Concomitant]
     Route: 048
  7. MOTILIUM [Suspect]
     Dosage: 1 DF, 3X/DAY
     Route: 048
     Dates: end: 20110204
  8. SKENAN [Suspect]
     Dosage: 60 MG, 2 UNITS DAILY
     Route: 048
  9. LASIX [Concomitant]
     Dosage: 40 MG, UNK
     Route: 048

REACTIONS (10)
  - PELVIC FRACTURE [None]
  - TREMOR [None]
  - FALL [None]
  - C-REACTIVE PROTEIN INCREASED [None]
  - CREATININE RENAL CLEARANCE DECREASED [None]
  - LUNG INFECTION [None]
  - EXTRAPYRAMIDAL DISORDER [None]
  - MALNUTRITION [None]
  - CONFUSIONAL STATE [None]
  - CARDIAC FAILURE [None]
